FAERS Safety Report 9858984 (Version 2)
Quarter: 2014Q2

REPORT INFORMATION
  Report Type: Spontaneous
  Country: US (occurrence: None)
  Receive Date: 20140129
  Receipt Date: 20140515
  Transmission Date: 20141212
  Serious: Yes (Other)
  Sender: FDA-Public Use
  Company Number: 2014-US-000737

PATIENT
  Age: 48 Year
  Sex: Male
  Weight: 73 kg

DRUGS (3)
  1. XYREM [Suspect]
     Indication: NARCOLEPSY
     Route: 048
     Dates: start: 20131223
  2. XYREM [Suspect]
     Indication: SOMNOLENCE
     Route: 048
     Dates: start: 20131223
  3. METHYLPHENIDATE (METHYLPHENIDATE HYDROCHLORIDE) [Concomitant]

REACTIONS (4)
  - Coma [None]
  - Nasopharyngitis [None]
  - Apathy [None]
  - Fatigue [None]
